FAERS Safety Report 14192167 (Version 1)
Quarter: 2017Q4

REPORT INFORMATION
  Report Type: Spontaneous
  Country: NO (occurrence: NO)
  Receive Date: 20171115
  Receipt Date: 20171115
  Transmission Date: 20180321
  Serious: Yes (Other)
  Sender: FDA-Public Use
  Company Number: NO-BAXTER-2017BAX037899

PATIENT
  Age: 41 Year
  Sex: Female
  Weight: 89 kg

DRUGS (5)
  1. KYPROLIS [Suspect]
     Active Substance: CARFILZOMIB
     Indication: PLASMA CELL MYELOMA
     Route: 042
     Dates: start: 20170718
  2. KYPROLIS [Suspect]
     Active Substance: CARFILZOMIB
     Route: 058
     Dates: start: 20170913, end: 20170913
  3. DEXAMETHASONE. [Suspect]
     Active Substance: DEXAMETHASONE
     Indication: PLASMA CELL MYELOMA
     Route: 065
     Dates: start: 20170718, end: 20171025
  4. SENDOXAN 1000 MG PULVER TIL INJEKSJONSV?SKE, OPPL?SNING [Suspect]
     Active Substance: CYCLOPHOSPHAMIDE
     Indication: PLASMA CELL MYELOMA
     Route: 065
     Dates: start: 20170718, end: 20171025
  5. KYPROLIS [Suspect]
     Active Substance: CARFILZOMIB
     Route: 058
     Dates: start: 20171011, end: 20171025

REACTIONS (9)
  - Infusion site extravasation [Recovering/Resolving]
  - Infusion site erythema [Recovering/Resolving]
  - Infusion site oedema [Unknown]
  - Incorrect dose administered [Unknown]
  - Infusion site infection [Unknown]
  - Infusion site pain [Recovered/Resolved]
  - Incorrect route of drug administration [Unknown]
  - Infusion site induration [Unknown]
  - Off label use [Unknown]

NARRATIVE: CASE EVENT DATE: 20170718
